FAERS Safety Report 9877225 (Version 1)
Quarter: 2014Q1

REPORT INFORMATION
  Report Type: Spontaneous
  Country: US (occurrence: US)
  Receive Date: 20140206
  Receipt Date: 20140206
  Transmission Date: 20141002
  Serious: No
  Sender: FDA-Public Use
  Company Number: US-BAYER-2014-019178

PATIENT
  Age: 70 Year
  Sex: Female
  Weight: 110.66 kg

DRUGS (7)
  1. ALEVE CAPLET [Suspect]
     Indication: HEADACHE
     Dosage: 1 DF, EVERY 12 HOURS
     Route: 048
     Dates: start: 201310
  2. ALEVE CAPLET [Suspect]
     Indication: ARTHRALGIA
  3. LEVOTHYROXINE [Concomitant]
     Dosage: UNK
  4. QUETIAPINE [Concomitant]
     Dosage: UNK
  5. SIMVASTATIN [Concomitant]
     Dosage: UNK
  6. REGLAN [Concomitant]
     Dosage: UNK
  7. LISINOPRIL [Concomitant]
     Dosage: UNK

REACTIONS (2)
  - Drug ineffective [None]
  - Incorrect drug administration duration [None]
